FAERS Safety Report 16312296 (Version 2)
Quarter: 2025Q2

REPORT INFORMATION
  Report Type: Spontaneous
  Country: AR (occurrence: AR)
  Receive Date: 20190515
  Receipt Date: 20250514
  Transmission Date: 20250717
  Serious: Yes (Other)
  Sender: ROCHE
  Company Number: AR-ROCHE-2315322

PATIENT
  Age: 68 Year
  Sex: Female

DRUGS (8)
  1. RITUXIMAB [Suspect]
     Active Substance: RITUXIMAB
     Indication: Follicular lymphoma
     Route: 065
  2. IFOSFAMIDE [Concomitant]
     Active Substance: IFOSFAMIDE
  3. CARBOPLATIN [Concomitant]
     Active Substance: CARBOPLATIN
  4. ETOPOSIDE [Concomitant]
     Active Substance: ETOPOSIDE
  5. BENDAMUSTINE [Concomitant]
     Active Substance: BENDAMUSTINE
  6. CYCLOPHOSPHAMIDE [Concomitant]
     Active Substance: CYCLOPHOSPHAMIDE
  7. VINCRISTINE [Concomitant]
     Active Substance: VINCRISTINE
  8. PREDNISONE [Concomitant]
     Active Substance: PREDNISONE

REACTIONS (8)
  - Cytopenia [Unknown]
  - Respiratory tract infection [Unknown]
  - Polyneuropathy [Unknown]
  - Muscular weakness [Unknown]
  - Skin mass [Unknown]
  - Follicular lymphoma [Unknown]
  - Follicular lymphoma refractory [Unknown]
  - Nodule [Unknown]
